FAERS Safety Report 4713705-X (Version None)
Quarter: 2005Q3

REPORT INFORMATION
  Report Type: 
  Country: None (occurrence: None)
  Receive Date: 20050712
  Receipt Date: 20050624
  Transmission Date: 20060218
  Serious: Yes (Death)
  Sender: FDA-Public Use
  Company Number: USA0506101243

PATIENT
  Age: 45 Year
  Sex: Female

DRUGS (2)
  1. PROZAC [Suspect]
     Dates: start: 20040101
  2. NALTREXONE [Concomitant]

REACTIONS (2)
  - EMPHYSEMA [None]
  - VICTIM OF HOMICIDE [None]
